FAERS Safety Report 16819337 (Version 2)
Quarter: 2019Q4

REPORT INFORMATION
  Report Type: Report from Study
  Country: ES (occurrence: ES)
  Receive Date: 20190917
  Receipt Date: 20191003
  Transmission Date: 20200122
  Serious: Yes (Hospitalization)
  Sender: FDA-Public Use
  Company Number: ES-TEVA-2019-ES-1108458

PATIENT
  Age: 94 Year
  Sex: Male

DRUGS (5)
  1. RABEPRAZOLE [Suspect]
     Active Substance: RABEPRAZOLE
     Route: 065
  2. PREDNISONE. [Suspect]
     Active Substance: PREDNISONE
     Route: 065
  3. DICLOFENAC [Interacting]
     Active Substance: DICLOFENAC
     Dosage: FORM OF ADMIN: UNKNOWN
     Route: 065
  4. ENALAPRIL [Interacting]
     Active Substance: ENALAPRIL
     Route: 065
  5. METHOTREXATE. [Suspect]
     Active Substance: METHOTREXATE
     Indication: RHEUMATOID ARTHRITIS
     Route: 065

REACTIONS (3)
  - Toxicity to various agents [Recovering/Resolving]
  - Drug interaction [Unknown]
  - Bicytopenia [Recovering/Resolving]
